FAERS Safety Report 24307123 (Version 1)
Quarter: 2024Q3

REPORT INFORMATION
  Report Type: Spontaneous
  Country: GB (occurrence: GB)
  Receive Date: 20240911
  Receipt Date: 20240911
  Transmission Date: 20241016
  Serious: Yes (Other)
  Sender: SANDOZ
  Company Number: None

PATIENT
  Age: 29 Year
  Sex: Male
  Weight: 65 kg

DRUGS (4)
  1. CLARITHROMYCIN [Suspect]
     Active Substance: CLARITHROMYCIN
     Indication: Ill-defined disorder
     Dosage: UNK
     Route: 065
     Dates: start: 20240830
  2. CLARITHROMYCIN [Concomitant]
     Active Substance: CLARITHROMYCIN
     Indication: Ill-defined disorder
     Dosage: TAKE ONE TABLET TWICE DAILY FOR INFECTION
     Route: 065
     Dates: start: 20240830, end: 20240906
  3. DOXYCYCLINE [Concomitant]
     Active Substance: DOXYCYCLINE\DOXYCYCLINE HYCLATE
     Indication: Ill-defined disorder
     Dosage: TAKE TWO NOW, THEN TAKE ONE DAILY FOR A FURTHER...
     Route: 065
     Dates: start: 20240612, end: 20240619
  4. EPIPEN [Concomitant]
     Active Substance: EPINEPHRINE
     Indication: Ill-defined disorder
     Dosage: IF YOU ARE NOT SURE HOW TO USE THIS DEVICE, PLE...
     Route: 065
     Dates: start: 20240620, end: 20240621

REACTIONS (4)
  - Hiccups [Recovered/Resolved]
  - Gastrooesophageal reflux disease [Recovered/Resolved]
  - Headache [Recovered/Resolved]
  - Abdominal pain [Recovered/Resolved]

NARRATIVE: CASE EVENT DATE: 20240830
